FAERS Safety Report 7196161-4 (Version None)
Quarter: 2010Q4

REPORT INFORMATION
  Report Type: 
  Country: None (occurrence: None)
  Receive Date: 20101223
  Receipt Date: 20101018
  Transmission Date: 20110411
  Serious: No
  Sender: FDA-Public Use
  Company Number: US-AMGEN-KDL441937

PATIENT

DRUGS (3)
  1. ENBREL [Suspect]
     Indication: PSORIATIC ARTHROPATHY
     Dosage: 50 MG, QWK
     Route: 058
     Dates: start: 20100427
  2. ENBREL [Suspect]
     Indication: PSORIASIS
  3. CALCITRIOL [Concomitant]
     Dosage: UNK
     Route: 061
     Dates: start: 20090423

REACTIONS (3)
  - BLISTER [None]
  - NASOPHARYNGITIS [None]
  - PHOTOSENSITIVITY REACTION [None]
